FAERS Safety Report 9062731 (Version 3)
Quarter: 2013Q1

REPORT INFORMATION
  Report Type: Spontaneous
  Country: JP (occurrence: JP)
  Receive Date: 20130213
  Receipt Date: 20130312
  Transmission Date: 20140127
  Serious: Yes (Life-Threatening, Other)
  Sender: FDA-Public Use
  Company Number: JP-PFIZER INC-2013024648

PATIENT
  Age: 71 Year
  Sex: Female
  Weight: 36.8 kg

DRUGS (5)
  1. ZITHROMAC [Suspect]
     Indication: PNEUMONIA MYCOPLASMAL
     Dosage: 500 MG, 1X/DAY
     Route: 041
  2. MAINTATE [Concomitant]
     Indication: CARDIAC FAILURE
     Dosage: 0.625 MG, 1X/DAY
     Route: 048
     Dates: start: 20121229
  3. PARIET [Concomitant]
     Dosage: 10 MG, 1X/DAY
     Route: 048
     Dates: start: 20121229
  4. HEPARIN CALCIUM [Concomitant]
     Indication: CARDIAC FAILURE
     Dosage: 5000 IU, 2X/DAY
     Route: 058
     Dates: start: 20130112
  5. LASIX [Concomitant]
     Indication: CARDIAC FAILURE
     Dosage: 20 G, 1 OR 2 TIMES A DAY
     Route: 042
     Dates: start: 20130112

REACTIONS (3)
  - Anaphylactoid reaction [Recovered/Resolved]
  - Nausea [Recovered/Resolved]
  - Cough [Recovered/Resolved]
